FAERS Safety Report 24219068 (Version 2)
Quarter: 2024Q3

REPORT INFORMATION
  Report Type: Spontaneous
  Country: TW (occurrence: TW)
  Receive Date: 20240816
  Receipt Date: 20240826
  Transmission Date: 20241016
  Serious: Yes (Other)
  Sender: CSL BEHRING
  Company Number: TW-BEH-2024177181

PATIENT
  Age: 23 Year
  Sex: Male

DRUGS (1)
  1. HUMAN IMMUNOGLOBULIN G [Suspect]
     Active Substance: HUMAN IMMUNOGLOBULIN G
     Indication: Guillain-Barre syndrome
     Route: 065

REACTIONS (3)
  - Bulbar palsy [Unknown]
  - Guillain-Barre syndrome [Unknown]
  - Respiratory failure [Unknown]
